FAERS Safety Report 11096464 (Version 1)
Quarter: 2015Q2

REPORT INFORMATION
  Report Type: Spontaneous
  Country: BR (occurrence: BR)
  Receive Date: 20150507
  Receipt Date: 20150507
  Transmission Date: 20150821
  Serious: Yes (Other)
  Sender: FDA-Public Use
  Company Number: BR-SA-2014SA075141

PATIENT
  Sex: Female
  Weight: 58.8 kg

DRUGS (5)
  1. CORTISONE [Concomitant]
     Active Substance: CORTISONE\HYDROCORTISONE
     Indication: SYSTEMIC LUPUS ERYTHEMATOSUS
  2. VITAMINS NOS [Concomitant]
     Active Substance: VITAMINS
     Indication: PREGNANCY
  3. CHLOROQUINE [Concomitant]
     Active Substance: CHLOROQUINE\CHLOROQUINE PHOSPHATE
     Indication: SYSTEMIC LUPUS ERYTHEMATOSUS
  4. CLEXANE [Suspect]
     Active Substance: ENOXAPARIN SODIUM
     Indication: THROMBOSIS
     Route: 065
     Dates: start: 201403
  5. CALCIUM [Concomitant]
     Active Substance: CALCIUM
     Indication: PREGNANCY

REACTIONS (4)
  - Exposure during pregnancy [Unknown]
  - Thrombosis [Unknown]
  - HELLP syndrome [Recovered/Resolved]
  - Placental insufficiency [Unknown]

NARRATIVE: CASE EVENT DATE: 201403
